FAERS Safety Report 12123826 (Version 1)
Quarter: 2016Q1

REPORT INFORMATION
  Report Type: Spontaneous
  Country: US (occurrence: US)
  Receive Date: 20160229
  Receipt Date: 20160229
  Transmission Date: 20160526
  Serious: No
  Sender: FDA-Public Use
  Company Number: US-BAYER-2016-039561

PATIENT
  Age: 87 Year
  Sex: Male
  Weight: 78.5 kg

DRUGS (1)
  1. MIRALAX [Suspect]
     Active Substance: POLYETHYLENE GLYCOL 3350
     Indication: CONSTIPATION
     Dosage: 1 DF, QD OR PRN
     Route: 048
     Dates: start: 201510

REACTIONS (1)
  - Product use issue [None]

NARRATIVE: CASE EVENT DATE: 201510
